FAERS Safety Report 5381933-9 (Version None)
Quarter: 2007Q3

REPORT INFORMATION
  Report Type: 
  Country: None (occurrence: None)
  Receive Date: 20070709
  Receipt Date: 20070705
  Transmission Date: 20080115
  Serious: Yes (Hospitalization)
  Sender: FDA-Public Use
  Company Number: US-MERCK-0705USA03102

PATIENT
  Age: 79 Year
  Sex: Female

DRUGS (8)
  1. FOSAMAX [Suspect]
     Indication: OSTEOPOROSIS
     Route: 048
     Dates: start: 19960101, end: 20000101
  2. FOSAMAX [Suspect]
     Route: 048
     Dates: start: 20000101, end: 20040101
  3. TOPROL-XL [Concomitant]
     Route: 065
  4. AUGMENTIN '125' [Concomitant]
     Route: 065
  5. DITROPAN [Concomitant]
     Route: 065
  6. BEXTRA [Concomitant]
     Route: 065
  7. HYDROCHLOROTHIAZIDE [Concomitant]
     Route: 065
  8. ENALAPRIL MALEATE [Concomitant]
     Route: 065

REACTIONS (2)
  - ATRIAL FIBRILLATION [None]
  - HAEMATURIA [None]
